FAERS Safety Report 26129074 (Version 1)
Quarter: 2025Q4

REPORT INFORMATION
  Report Type: Spontaneous
  Country: NZ (occurrence: NZ)
  Receive Date: 20251208
  Receipt Date: 20251208
  Transmission Date: 20260118
  Serious: Yes (Other)
  Sender: SANDOZ
  Company Number: NZ-SANDOZ-SDZ2025NZ091212

PATIENT
  Sex: Female

DRUGS (1)
  1. ESTRADIOL [Suspect]
     Active Substance: ESTRADIOL
     Indication: Product used for unknown indication
     Dosage: ESTRADOT 50
     Route: 062

REACTIONS (4)
  - Suicidal ideation [Recovered/Resolved]
  - Menopausal symptoms [Recovered/Resolved]
  - Arthritis [Recovered/Resolved]
  - Product physical issue [Unknown]
